FAERS Safety Report 15605502 (Version 1)
Quarter: 2018Q4

REPORT INFORMATION
  Report Type: Spontaneous
  Country: BR (occurrence: BR)
  Receive Date: 20181112
  Receipt Date: 20181112
  Transmission Date: 20190205
  Serious: Yes (Hospitalization)
  Sender: FDA-Public Use
  Company Number: BR-ROCHE-2213029

PATIENT
  Age: 91 Year
  Sex: Female

DRUGS (1)
  1. ERIVEDGE [Suspect]
     Active Substance: VISMODEGIB
     Indication: LUNG NEOPLASM MALIGNANT
     Route: 065

REACTIONS (5)
  - Dysphagia [Not Recovered/Not Resolved]
  - Decreased appetite [Unknown]
  - Malnutrition [Unknown]
  - Intentional product use issue [Unknown]
  - Off label use [Unknown]
